FAERS Safety Report 4819199-8 (Version None)
Quarter: 2005Q4

REPORT INFORMATION
  Report Type: 
  Country: None (occurrence: None)
  Receive Date: 20051103
  Receipt Date: 20010521
  Transmission Date: 20060501
  Serious: Yes (Hospitalization)
  Sender: FDA-Public Use
  Company Number: JP-GLAXOSMITHKLINE-B0109102A

PATIENT
  Age: 39 Year
  Sex: Male
  Weight: 78.5 kg

DRUGS (16)
  1. LAMIVUDINE [Suspect]
     Indication: HEPATIC CIRRHOSIS
     Dosage: 100MG PER DAY
     Route: 048
     Dates: start: 20010219
  2. NATEGLINIDE [Concomitant]
     Indication: DIABETES MELLITUS
     Dates: start: 20010416, end: 20010501
  3. URSODIOL [Concomitant]
     Indication: DRUG USE FOR UNKNOWN INDICATION
     Dosage: 100.02MG UNKNOWN
     Route: 048
     Dates: start: 19990621
  4. LASIX [Concomitant]
     Indication: ASCITES
     Dosage: 20MG TWICE PER DAY
     Route: 048
     Dates: start: 20010127, end: 20011107
  5. LACTULOSE [Concomitant]
     Indication: HYPERAMMONAEMIA
     Dosage: 10ML TWICE PER DAY
     Route: 048
     Dates: start: 20010127, end: 20010801
  6. SPIRONOLACTONE [Concomitant]
     Indication: ASCITES
     Dosage: 25MG TWICE PER DAY
     Route: 048
     Dates: start: 20010127
  7. ROXATIDINE ACETATE HCL [Concomitant]
     Indication: GASTRITIS
     Dosage: 75MG TWICE PER DAY
     Route: 048
  8. TEPRENONE [Concomitant]
     Indication: GASTRITIS
     Route: 048
  9. TOCOPHEROL CONCENTRATE CAP [Concomitant]
     Indication: SHOCK
     Dosage: 100MG PER DAY
     Route: 048
  10. STRONGER NEO-MINOPHAGEN C [Concomitant]
     Indication: LIVER DISORDER
     Route: 042
  11. LIVACT [Concomitant]
     Indication: HYPOPROTEINAEMIA
     Route: 048
     Dates: start: 20001129
  12. MONILAC [Concomitant]
     Indication: DRUG USE FOR UNKNOWN INDICATION
     Dosage: 20ML UNKNOWN
     Route: 048
     Dates: start: 20010127, end: 20010801
  13. ALDACTONE [Concomitant]
     Indication: ASCITES
     Dosage: 50MG UNKNOWN
     Route: 048
     Dates: start: 20010127
  14. ALTAT [Concomitant]
     Indication: GASTRITIS
     Dosage: 150MG UNKNOWN
     Route: 048
  15. SELBEX [Concomitant]
     Indication: GASTRITIS
     Route: 048
  16. JUVELA N [Concomitant]
     Indication: SHOCK
     Dosage: 99.99MG UNKNOWN
     Route: 048

REACTIONS (4)
  - DIABETES MELLITUS [None]
  - DRUG INEFFECTIVE [None]
  - HYPERGLYCAEMIA [None]
  - MALAISE [None]
